FAERS Safety Report 16848878 (Version 1)
Quarter: 2019Q3

REPORT INFORMATION
  Report Type: Spontaneous
  Country: US (occurrence: US)
  Receive Date: 20190925
  Receipt Date: 20190925
  Transmission Date: 20191005
  Serious: No
  Sender: FDA-Public Use
  Company Number: US-ASTRAZENECA-2019SF23381

PATIENT
  Age: 3902 Week
  Sex: Female
  Weight: 79.8 kg

DRUGS (20)
  1. FLUOCINONIDE CREAM [Concomitant]
     Active Substance: FLUOCINONIDE
     Indication: NEURODERMATITIS
  2. LIPITOR [Concomitant]
     Active Substance: ATORVASTATIN CALCIUM
  3. ALBUTEROL HFA [Concomitant]
     Active Substance: ALBUTEROL SULFATE
  4. REFRESH OPTIVE [Concomitant]
     Active Substance: CARBOXYMETHYLCELLULOSE SODIUM\GLYCERIN
  5. HYLATOPIC CREAM [Concomitant]
     Indication: SCAR
  6. BUSPIRONE HCL [Concomitant]
     Active Substance: BUSPIRONE HYDROCHLORIDE
  7. ERYTHROMYCIN OINTMENT [Concomitant]
     Active Substance: ERYTHROMYCIN
  8. DIFLORASONE DIACETATE. [Concomitant]
     Active Substance: DIFLORASONE DIACETATE
     Indication: PIGMENTATION DISORDER
  9. NEURONTIN [Concomitant]
     Active Substance: GABAPENTIN
  10. BYDUREON [Suspect]
     Active Substance: EXENATIDE
     Indication: TYPE 2 DIABETES MELLITUS
     Dosage: BYDUREON SDT
     Route: 058
  11. CLOBETASOL PROPIONATE, 0.05% [Concomitant]
     Indication: NEURODERMATITIS
  12. METFORMIN ER [Concomitant]
     Active Substance: METFORMIN HYDROCHLORIDE
  13. HYDROCORTISONE CREAM [Concomitant]
     Active Substance: HYDROCORTISONE
  14. BYDUREON [Suspect]
     Active Substance: EXENATIDE
     Indication: TYPE 2 DIABETES MELLITUS
     Route: 058
     Dates: start: 20190815
  15. ANTIVERT [Concomitant]
     Active Substance: MECLIZINE HYDROCHLORIDE
  16. HYDROQUINONE. [Concomitant]
     Active Substance: HYDROQUINONE
  17. RAMIPRIL. [Concomitant]
     Active Substance: RAMIPRIL
  18. NAPROXEN. [Concomitant]
     Active Substance: NAPROXEN
     Indication: PAIN
  19. PROAIR INH [Concomitant]
  20. FLUTICASONE. [Concomitant]
     Active Substance: FLUTICASONE
     Indication: ALLERGY PROPHYLAXIS

REACTIONS (7)
  - Incorrect dose administered by device [Recovered/Resolved with Sequelae]
  - Haemorrhage [Unknown]
  - Obsessive-compulsive disorder [Unknown]
  - Product dose omission [Unknown]
  - Limb injury [Unknown]
  - Injection site extravasation [Unknown]
  - Product dispensing error [Unknown]

NARRATIVE: CASE EVENT DATE: 20190815
